FAERS Safety Report 23462789 (Version 1)
Quarter: 2024Q1

REPORT INFORMATION
  Report Type: Spontaneous
  Country: US (occurrence: None)
  Receive Date: 20240131
  Receipt Date: 20240131
  Transmission Date: 20240409
  Serious: Yes (Hospitalization)
  Sender: FDA-Public Use
  Company Number: None

PATIENT
  Sex: Male

DRUGS (4)
  1. OPSUMIT [Suspect]
     Active Substance: MACITENTAN
     Indication: Pulmonary arterial hypertension
     Dosage: 10MG ONCE DAILY BY MOUTH
     Route: 048
     Dates: start: 202303
  2. TADALAFIL [Concomitant]
     Active Substance: TADALAFIL
  3. SCEMBUX [Concomitant]
  4. REMODULIN [Concomitant]

REACTIONS (2)
  - Therapy interrupted [None]
  - Catheter management [None]
